FAERS Safety Report 6932637-X (Version None)
Quarter: 2010Q3

REPORT INFORMATION
  Report Type: 
  Country: None (occurrence: None)
  Receive Date: 20100819
  Receipt Date: 20100809
  Transmission Date: 20110219
  Serious: Yes (Other)
  Sender: FDA-Public Use
  Company Number: BR-PFIZER INC-2010100234

PATIENT
  Age: 60 Year
  Sex: Male

DRUGS (4)
  1. VIAGRA [Suspect]
     Indication: ERECTILE DYSFUNCTION
     Dosage: 50 MG, UNK
     Route: 048
     Dates: start: 20020101, end: 20030701
  2. CIALIS [Concomitant]
     Dosage: UNK
     Dates: start: 20040101, end: 20060101
  3. AMFEPRAMONE [Concomitant]
     Indication: OBESITY
     Dosage: UNK
     Dates: start: 20070809
  4. AMLODIPINE [Concomitant]
     Indication: HYPERTENSION
     Dosage: UNK
     Dates: start: 20070809

REACTIONS (4)
  - AGITATION [None]
  - DEVICE OCCLUSION [None]
  - INFARCTION [None]
  - PROSTATIC OPERATION [None]
